FAERS Safety Report 9809227 (Version 2)
Quarter: 2014Q1

REPORT INFORMATION
  Report Type: Spontaneous
  Country: US (occurrence: US)
  Receive Date: 20140110
  Receipt Date: 20140306
  Transmission Date: 20141002
  Serious: Yes (Hospitalization)
  Sender: FDA-Public Use
  Company Number: US-CELGENEUS-163-21880-14010242

PATIENT
  Sex: Female

DRUGS (2)
  1. REVLIMID [Suspect]
     Indication: PLASMA CELL MYELOMA
     Dosage: 10 MILLIGRAM
     Route: 048
     Dates: start: 201308, end: 201308
  2. REVLIMID [Suspect]
     Dosage: 10 MILLIGRAM
     Route: 048
     Dates: start: 201401

REACTIONS (8)
  - Hypercalcaemia [Unknown]
  - Memory impairment [Unknown]
  - Renal failure [Unknown]
  - Fall [Unknown]
  - Loss of consciousness [Unknown]
  - Laboratory test abnormal [Unknown]
  - Malaise [Unknown]
  - Somnolence [Unknown]
